FAERS Safety Report 8861233 (Version 2)
Quarter: 2012Q4

REPORT INFORMATION
  Report Type: 
  Country: US (occurrence: US)
  Receive Date: 20121026
  Receipt Date: 20121221
  Transmission Date: 20130627
  Serious: No
  Sender: FDA-Public Use
  Company Number: US-PFIZER INC-2012263953

PATIENT
  Age: 61 Year
  Sex: Male

DRUGS (1)
  1. LATANOPROST [Suspect]
     Dosage: UNK
     Route: 047
     Dates: start: 20111209, end: 20120511

REACTIONS (3)
  - Hypersensitivity [Recovered/Resolved]
  - Ocular hyperaemia [Recovered/Resolved]
  - Eye pruritus [Recovered/Resolved]
